FAERS Safety Report 18683081 (Version 1)
Quarter: 2020Q4

REPORT INFORMATION
  Report Type: Spontaneous
  Country: ES (occurrence: ES)
  Receive Date: 20201230
  Receipt Date: 20201230
  Transmission Date: 20210114
  Serious: Yes (Hospitalization)
  Sender: FDA-Public Use
  Company Number: ES-TEVA-2020-ES-1862762

PATIENT
  Sex: Male

DRUGS (3)
  1. PEMETREXED (2944A) [Concomitant]
     Active Substance: PEMETREXED
     Dates: start: 202008
  2. CARBOPLATINO (2323A) [Suspect]
     Active Substance: CARBOPLATIN
     Route: 065
     Dates: start: 202008
  3. PEMBROLIZUMAB (9069A) [Concomitant]
     Dates: start: 202008

REACTIONS (1)
  - Pancytopenia [Recovered/Resolved]

NARRATIVE: CASE EVENT DATE: 202010
